FAERS Safety Report 13097769 (Version 1)
Quarter: 2017Q1

REPORT INFORMATION
  Report Type: Spontaneous
  Country: US (occurrence: US)
  Receive Date: 20170109
  Receipt Date: 20170109
  Transmission Date: 20170428
  Serious: No
  Sender: FDA-Public Use
  Company Number: None

PATIENT
  Sex: Female

DRUGS (1)
  1. HUMIRA [Suspect]
     Active Substance: ADALIMUMAB
     Indication: PSORIATIC ARTHROPATHY
     Dosage: 40 MG EVERY 2 WEEKS
     Route: 058
     Dates: start: 20151028, end: 20160125

REACTIONS (5)
  - Injection site reaction [None]
  - Drug ineffective [None]
  - Injection site swelling [None]
  - Skin discolouration [None]
  - Injection site erythema [None]
